FAERS Safety Report 7557822-8 (Version None)
Quarter: 2011Q2

REPORT INFORMATION
  Report Type: 
  Country: None (occurrence: None)
  Receive Date: 20110620
  Receipt Date: 20110614
  Transmission Date: 20111010
  Serious: Yes (Life-Threatening, Hospitalization)
  Sender: FDA-Public Use
  Company Number: US-ASTRAZENECA-2011SE36093

PATIENT
  Age: 36 Year
  Sex: Male

DRUGS (4)
  1. SEROQUEL [Suspect]
     Indication: BIPOLAR DISORDER
     Route: 048
     Dates: start: 20080101
  2. KLONOPIN [Concomitant]
  3. LAMICTAL [Concomitant]
  4. MULTIPLE OTHER MEDICATIONS [Concomitant]

REACTIONS (2)
  - SUICIDE ATTEMPT [None]
  - OVERDOSE [None]
